FAERS Safety Report 6626581-5 (Version None)
Quarter: 2010Q1

REPORT INFORMATION
  Report Type: 
  Country: None (occurrence: None)
  Receive Date: 20100309
  Receipt Date: 20100309
  Transmission Date: 20100710
  Serious: Yes (Other)
  Sender: FDA-Public Use
  Company Number: None

PATIENT
  Sex: Female
  Weight: 86.637 kg

DRUGS (1)
  1. EFFEXOR XR [Suspect]
     Indication: HOT FLUSH
     Dosage: 1 CAPSULE 1 X PER DAY PO
     Route: 048
     Dates: start: 20091125, end: 20100305

REACTIONS (10)
  - ARTHRALGIA [None]
  - CONTUSION [None]
  - FATIGUE [None]
  - MUSCULOSKELETAL PAIN [None]
  - MYALGIA [None]
  - PAIN [None]
  - PAIN IN EXTREMITY [None]
  - PARAESTHESIA [None]
  - TENDON PAIN [None]
  - VISION BLURRED [None]
